FAERS Safety Report 25067390 (Version 1)
Quarter: 2025Q1

REPORT INFORMATION
  Report Type: Spontaneous
  Country: US (occurrence: None)
  Receive Date: 20250311
  Receipt Date: 20250311
  Transmission Date: 20250409
  Serious: No
  Sender: FDA-CTU
  Company Number: None

PATIENT
  Age: 65 Year
  Sex: Female

DRUGS (1)
  1. ALBUTEROL [Suspect]
     Active Substance: ALBUTEROL

REACTIONS (1)
  - Drug ineffective [None]

NARRATIVE: CASE EVENT DATE: 20250311
